FAERS Safety Report 7034400-0 (Version None)
Quarter: 2010Q4

REPORT INFORMATION
  Report Type: 
  Country: None (occurrence: None)
  Receive Date: 20101008
  Receipt Date: 20100927
  Transmission Date: 20110411
  Serious: Yes (Other)
  Sender: FDA-Public Use
  Company Number: PHHY2010US64912

PATIENT
  Sex: Female

DRUGS (2)
  1. ENABLEX [Suspect]
     Dosage: 7.5 MG, UNK
     Route: 048
     Dates: start: 20100402
  2. ENABLEX [Suspect]
     Dosage: 15 MG, UNK
     Route: 048

REACTIONS (7)
  - BLOOD PRESSURE INCREASED [None]
  - COUGH [None]
  - DYSPEPSIA [None]
  - FEELING ABNORMAL [None]
  - HYPOTENSION [None]
  - LOSS OF CONSCIOUSNESS [None]
  - PARAESTHESIA [None]
